FAERS Safety Report 6808259-8 (Version None)
Quarter: 2010Q2

REPORT INFORMATION
  Report Type: 
  Country: None (occurrence: None)
  Receive Date: 20100629
  Receipt Date: 20090416
  Transmission Date: 20101027
  Serious: No
  Sender: FDA-Public Use
  Company Number: US-PFIZER INC-2009195790

PATIENT

DRUGS (4)
  1. ALPRAZOLAM [Suspect]
     Indication: ANXIETY DISORDER
  2. ALPRAZOLAM [Suspect]
     Indication: PANIC ATTACK
  3. XANAX XR [Suspect]
     Indication: ANXIETY DISORDER
     Dosage: UNK
  4. XANAX XR [Suspect]
     Indication: PANIC ATTACK

REACTIONS (5)
  - ANXIETY [None]
  - CIRCUMSTANCE OR INFORMATION CAPABLE OF LEADING TO MEDICATION ERROR [None]
  - DRUG INEFFECTIVE [None]
  - MENTAL DISORDER [None]
  - PANIC ATTACK [None]
